FAERS Safety Report 20353547 (Version 2)
Quarter: 2022Q1

REPORT INFORMATION
  Report Type: Report from Study
  Country: US (occurrence: US)
  Receive Date: 20220119
  Receipt Date: 20220209
  Transmission Date: 20220423
  Serious: Yes (Hospitalization)
  Sender: FDA-Public Use
  Company Number: US-ABBVIE-22K-163-4240551-00

PATIENT
  Sex: Male

DRUGS (4)
  1. VENCLEXTA [Suspect]
     Active Substance: VENETOCLAX
     Indication: Acute myeloid leukaemia
     Route: 048
  2. VENCLEXTA [Suspect]
     Active Substance: VENETOCLAX
     Route: 048
  3. COVID-19 VACCINE [Concomitant]
     Indication: COVID-19 immunisation
     Route: 030
  4. COVID-19 VACCINE [Concomitant]
     Dosage: BOOSTER DOSE
     Route: 030

REACTIONS (1)
  - COVID-19 [Unknown]
